FAERS Safety Report 9175369 (Version 1)
Quarter: 2013Q1

REPORT INFORMATION
  Report Type: Report from Study
  Country: MY (occurrence: MY)
  Receive Date: 20130320
  Receipt Date: 20130320
  Transmission Date: 20140127
  Serious: Yes (Hospitalization)
  Sender: FDA-Public Use
  Company Number: MY-JNJFOC-20110610301

PATIENT
  Age: 57 Year
  Sex: Male
  Weight: 65 kg

DRUGS (15)
  1. GOLIMUMAB [Suspect]
     Indication: RHEUMATOID ARTHRITIS
     Route: 042
  2. GOLIMUMAB [Suspect]
     Indication: RHEUMATOID ARTHRITIS
     Route: 042
     Dates: start: 20101015
  3. GOLIMUMAB [Suspect]
     Indication: RHEUMATOID ARTHRITIS
     Route: 042
     Dates: start: 20110428
  4. METHOTREXATE [Suspect]
     Indication: RHEUMATOID ARTHRITIS
     Route: 048
     Dates: start: 20080415
  5. METHOTREXATE [Suspect]
     Indication: RHEUMATOID ARTHRITIS
     Route: 048
     Dates: start: 20110620
  6. PREDNISOLONE [Concomitant]
     Indication: RHEUMATOID ARTHRITIS
     Route: 048
     Dates: start: 20080414
  7. FOLATE [Concomitant]
     Route: 048
  8. OMEPRAZOLE [Concomitant]
     Indication: UPPER GASTROINTESTINAL HAEMORRHAGE
     Route: 048
     Dates: start: 20090119
  9. CALCIUM LACTATE [Concomitant]
     Indication: RHEUMATOID ARTHRITIS
     Route: 048
     Dates: start: 20080617
  10. CELEBREX [Concomitant]
     Indication: RHEUMATOID ARTHRITIS
     Route: 048
     Dates: start: 20110704
  11. CELEBREX [Concomitant]
     Indication: RHEUMATOID ARTHRITIS
     Route: 048
     Dates: start: 20100608, end: 20110703
  12. VOLTAREN [Concomitant]
     Indication: RHEUMATOID ARTHRITIS
     Route: 061
     Dates: start: 20100608
  13. PARACETAMOL [Concomitant]
     Indication: RHEUMATOID ARTHRITIS
     Route: 048
     Dates: start: 20100812
  14. FELODIPINE [Concomitant]
     Route: 048
     Dates: start: 20110209
  15. MICONAZOLE [Concomitant]
     Route: 061
     Dates: start: 20110120

REACTIONS (1)
  - Tuberculosis [Not Recovered/Not Resolved]
